FAERS Safety Report 19911670 (Version 1)
Quarter: 2021Q4

REPORT INFORMATION
  Report Type: Spontaneous
  Country: US (occurrence: US)
  Receive Date: 20211002
  Receipt Date: 20211002
  Transmission Date: 20220303
  Serious: No
  Sender: FDA-Public Use
  Company Number: None

PATIENT
  Age: 61 Year
  Sex: Female
  Weight: 62.55 kg

DRUGS (8)
  1. TERBINAFINE HYDROCHLORIDE [Suspect]
     Active Substance: TERBINAFINE HYDROCHLORIDE
     Indication: Onychomycosis
     Dosage: ?          QUANTITY:1 TABLET(S);
     Route: 048
  2. HORMONE REPLACEMENT [Concomitant]
  3. ESTRADIOL [Concomitant]
     Active Substance: ESTRADIOL
  4. PROGESTERONE [Concomitant]
     Active Substance: PROGESTERONE
  5. ATORVASTATIN [Concomitant]
     Active Substance: ATORVASTATIN
  6. DIETARY SUPPLEMENT [Concomitant]
     Active Substance: DIETARY SUPPLEMENT
  7. OVER 55 MULTIVITAMIN [Concomitant]
  8. CALCIUM\VITAMIN D [Concomitant]
     Active Substance: CALCIUM\VITAMIN D

REACTIONS (1)
  - Ageusia [None]

NARRATIVE: CASE EVENT DATE: 20210903
